FAERS Safety Report 8064211-9 (Version None)
Quarter: 2012Q1

REPORT INFORMATION
  Report Type: 
  Country: None (occurrence: None)
  Receive Date: 20120123
  Receipt Date: 20120116
  Transmission Date: 20120608
  Serious: Yes (Other)
  Sender: FDA-Public Use
  Company Number: US-TEVA-318173USA

PATIENT
  Age: 62 Year
  Sex: Female

DRUGS (1)
  1. OCTREOTIDE ACETATE [Suspect]
     Indication: HYPERCHYLOMICRONAEMIA
     Dosage: 300 MICROGRAM;
     Route: 058

REACTIONS (3)
  - INTESTINAL ISCHAEMIA [None]
  - ABDOMINAL PAIN LOWER [None]
  - ABDOMINAL REBOUND TENDERNESS [None]
